FAERS Safety Report 13158010 (Version 1)
Quarter: 2017Q1

REPORT INFORMATION
  Report Type: Spontaneous
  Country: US (occurrence: US)
  Receive Date: 20170124
  Receipt Date: 20170124
  Transmission Date: 20170428
  Serious: Yes (Other)
  Sender: FDA-Public Use
  Company Number: None

PATIENT
  Age: 30 Year
  Sex: Female
  Weight: 79.2 kg

DRUGS (2)
  1. NOVOLOG [Suspect]
     Active Substance: INSULIN ASPART
     Indication: HYPERGLYCAEMIA
     Route: 058
     Dates: start: 20170120, end: 20170121
  2. BETAMETHASONE. [Concomitant]
     Active Substance: BETAMETHASONE

REACTIONS (4)
  - Speech disorder [None]
  - Eye disorder [None]
  - Fatigue [None]
  - Lacrimation increased [None]

NARRATIVE: CASE EVENT DATE: 20170121
